FAERS Safety Report 4859971-1 (Version None)
Quarter: 2005Q4

REPORT INFORMATION
  Report Type: 
  Country: None (occurrence: None)
  Receive Date: 20051219
  Receipt Date: 20030605
  Transmission Date: 20060501
  Serious: Yes (Death, Hospitalization, Other)
  Sender: FDA-Public Use
  Company Number: US-MERCK-0306USA00712

PATIENT
  Age: 73 Year
  Sex: Male
  Weight: 82 kg

DRUGS (7)
  1. VIOXX [Suspect]
     Indication: PROCEDURAL PAIN
     Route: 048
     Dates: start: 20001027, end: 20001113
  2. VIOXX [Suspect]
     Route: 048
  3. NEURONTIN [Concomitant]
     Route: 065
  4. LACTULOSE [Concomitant]
     Route: 048
  5. GLUCOPHAGE [Concomitant]
     Route: 065
  6. GLYBURIDE [Concomitant]
     Route: 065
  7. LOTREL [Concomitant]
     Route: 065

REACTIONS (38)
  - ABDOMINAL PAIN [None]
  - ANGINA PECTORIS [None]
  - ANOREXIA [None]
  - ARTHRALGIA [None]
  - ARTHRITIS [None]
  - ARTHROPATHY [None]
  - BACK PAIN [None]
  - BENIGN PROSTATIC HYPERPLASIA [None]
  - BLADDER DISORDER [None]
  - BLOOD GLUCOSE INCREASED [None]
  - BLOOD PRESSURE INCREASED [None]
  - CARDIOVASCULAR DISORDER [None]
  - CAROTID BRUIT [None]
  - CARPAL TUNNEL SYNDROME [None]
  - CAUDA EQUINA SYNDROME [None]
  - CHEST PAIN [None]
  - CONSTIPATION [None]
  - CONVULSION [None]
  - DEPRESSION [None]
  - DRY MOUTH [None]
  - EPIDIDYMAL CYST [None]
  - ERECTILE DYSFUNCTION [None]
  - FATIGUE [None]
  - FLATULENCE [None]
  - HYPERHIDROSIS [None]
  - INTERVERTEBRAL DISC DEGENERATION [None]
  - INTESTINAL FUNCTIONAL DISORDER [None]
  - MALNUTRITION [None]
  - OEDEMA PERIPHERAL [None]
  - OSTEITIS [None]
  - OSTEOARTHRITIS [None]
  - PULMONARY EMBOLISM [None]
  - RADICULOPATHY [None]
  - SCOLIOSIS [None]
  - SKIN LESION [None]
  - SPINAL COLUMN STENOSIS [None]
  - STRESS [None]
  - TESTICULAR PAIN [None]
